FAERS Safety Report 4893270-7 (Version None)
Quarter: 2006Q1

REPORT INFORMATION
  Report Type: 
  Country: None (occurrence: None)
  Receive Date: 20060124
  Receipt Date: 20060112
  Transmission Date: 20060701
  Serious: Yes (Hospitalization)
  Sender: FDA-Public Use
  Company Number: 2006-137109-NL

PATIENT
  Age: 32 Year
  Sex: Female
  Weight: 70.3 kg

DRUGS (1)
  1. NUVARING [Suspect]
     Indication: CONTRACEPTION
     Dosage: NI VAGINAL, 3 WEEKS IN, 1 WEEK OUT
     Route: 067
     Dates: start: 20051001, end: 20051110

REACTIONS (10)
  - ABDOMINAL PAIN UPPER [None]
  - ANGER [None]
  - DEPRESSION [None]
  - HYPOAESTHESIA [None]
  - MIGRAINE [None]
  - OEDEMA PERIPHERAL [None]
  - PSYCHOTIC DISORDER [None]
  - RASH [None]
  - STRESS [None]
  - VOMITING [None]
